FAERS Safety Report 8348764 (Version 2)
Quarter: 2013Q2

REPORT INFORMATION
  Report Type: Report from Study
  Country: BE (occurrence: BE)
  Receive Date: 20120123
  Receipt Date: 20130603
  Transmission Date: 20140414
  Serious: Yes (Death, Hospitalization)
  Sender: FDA-Public Use
  Company Number: PHHO2011BE020177

PATIENT
  Age: 68 Year
  Sex: Male
  Weight: 82.3 kg

DRUGS (9)
  1. ALISKIREN [Suspect]
     Indication: CARDIOVASCULAR DISORDER
     Dosage: 300 MG, QD
     Route: 048
     Dates: start: 20090406, end: 20111221
  2. INSULIN ACTRAPID [Concomitant]
     Indication: TYPE 2 DIABETES MELLITUS
     Dosage: 26 EP/D
     Route: 058
  3. INSULIN INSULATARD [Concomitant]
     Indication: TYPE 2 DIABETES MELLITUS
     Dosage: 42 E P/D
     Route: 058
  4. LISINOPRIL [Concomitant]
     Indication: CARDIOVASCULAR DISORDER
     Dosage: UNK
     Route: 048
  5. BISOPROLOL [Concomitant]
     Indication: CARDIOVASCULAR DISORDER
     Dosage: UNK
     Route: 048
  6. AMLODIPINE [Concomitant]
     Indication: CARDIOVASCULAR DISORDER
     Dosage: UNK
     Route: 048
  7. LIPANTHYL [Concomitant]
     Indication: CARDIOVASCULAR DISORDER
     Dosage: UNK
     Route: 048
  8. HYDROCHLOROTHIAZIDE [Concomitant]
     Indication: CARDIOVASCULAR DISORDER
     Dosage: UNK
     Route: 048
  9. MOXONIDINE [Concomitant]
     Indication: CARDIOVASCULAR DISORDER
     Dosage: UNK
     Route: 048

REACTIONS (4)
  - Chronic obstructive pulmonary disease [Recovering/Resolving]
  - Pneumonia [Recovering/Resolving]
  - Concomitant disease progression [Recovering/Resolving]
  - Sudden death [Fatal]
